FAERS Safety Report 6077725-8 (Version None)
Quarter: 2009Q1

REPORT INFORMATION
  Report Type: 
  Country: None (occurrence: None)
  Receive Date: 20090213
  Receipt Date: 20090209
  Transmission Date: 20090719
  Serious: Yes (Other)
  Sender: FDA-Public Use
  Company Number: PHEH2009US01379

PATIENT
  Age: 48 Year
  Sex: Female

DRUGS (1)
  1. NEORAL [Suspect]
     Dosage: 100 MG

REACTIONS (4)
  - IMPAIRED WORK ABILITY [None]
  - INSOMNIA [None]
  - NERVOUS SYSTEM DISORDER [None]
  - PAIN IN EXTREMITY [None]
